FAERS Safety Report 4871143-3 (Version None)
Quarter: 2005Q4

REPORT INFORMATION
  Report Type: 
  Country: None (occurrence: None)
  Receive Date: 20051229
  Receipt Date: 20051213
  Transmission Date: 20060501
  Serious: Yes (Other)
  Sender: FDA-Public Use
  Company Number: PHBS2005IL18603

PATIENT
  Age: 78 Year
  Sex: Male

DRUGS (1)
  1. VISUDYNE [Suspect]
     Indication: CHOROIDAL NEOVASCULARISATION

REACTIONS (4)
  - CONDITION AGGRAVATED [None]
  - DETACHMENT OF RETINAL PIGMENT EPITHELIUM [None]
  - POST PROCEDURAL COMPLICATION [None]
  - VISUAL ACUITY REDUCED [None]
